FAERS Safety Report 6379799-3 (Version None)
Quarter: 2009Q3

REPORT INFORMATION
  Report Type: 
  Country: None (occurrence: None)
  Receive Date: 20090928
  Receipt Date: 20090923
  Transmission Date: 20100115
  Serious: Yes (Hospitalization, Disabling, Other)
  Sender: FDA-Public Use
  Company Number: DE-AVENTIS-200911967DE

PATIENT
  Age: 57 Year
  Sex: Male
  Weight: 72.5 kg

DRUGS (1)
  1. LANTUS [Suspect]
     Indication: DRUG USE FOR UNKNOWN INDICATION
     Dosage: DOSE: 100 ML
     Route: 058
     Dates: start: 19990101

REACTIONS (1)
  - TONSIL CANCER [None]
